FAERS Safety Report 13736980 (Version 5)
Quarter: 2022Q1

REPORT INFORMATION
  Report Type: Spontaneous
  Country: BR (occurrence: BR)
  Receive Date: 20170710
  Receipt Date: 20220215
  Transmission Date: 20220423
  Serious: Yes (Disabling)
  Sender: FDA-Public Use
  Company Number: BR-BIOMARINAP-BR-2017-114627

PATIENT
  Age: 14 Year
  Sex: Female
  Weight: 53 kg

DRUGS (6)
  1. ALDURAZYME [Suspect]
     Active Substance: LARONIDASE
     Indication: Mucopolysaccharidosis I
     Dosage: 13.5 DOSAGE FORM, QOW
     Route: 041
     Dates: start: 20100101
  2. ALDURAZYME [Suspect]
     Active Substance: LARONIDASE
     Dosage: 39 MILLIGRAM, QOW
     Route: 041
     Dates: start: 20101001
  3. ALDURAZYME [Suspect]
     Active Substance: LARONIDASE
     Dosage: 19.5 MILLIGRAM
     Route: 041
     Dates: start: 2017
  4. CARVEDILOL [Concomitant]
     Active Substance: CARVEDILOL
     Indication: Product used for unknown indication
     Dosage: 2 DF,QD (/ IN THE MORNING; AT NIGHT)
     Dates: start: 2005
  5. CAPTOPRIL [Concomitant]
     Active Substance: CAPTOPRIL
     Indication: Product used for unknown indication
     Dosage: 1.5 DF,QD
     Dates: start: 2011
  6. Covid-19 vaccine [Concomitant]
     Indication: Immunisation
     Dosage: UNK
     Route: 065
     Dates: start: 202201, end: 202201

REACTIONS (10)
  - Gait inability [Not Recovered/Not Resolved]
  - Pain in extremity [Not Recovered/Not Resolved]
  - Abdominal pain [Not Recovered/Not Resolved]
  - Blood pressure increased [Not Recovered/Not Resolved]
  - Intentional product use issue [Unknown]
  - Arthralgia [Not Recovered/Not Resolved]
  - Product availability issue [Unknown]
  - Chest pain [Not Recovered/Not Resolved]
  - Illness [Unknown]
  - Off label use [Unknown]

NARRATIVE: CASE EVENT DATE: 20160101
